FAERS Safety Report 8422360-7 (Version None)
Quarter: 2012Q2

REPORT INFORMATION
  Report Type: 
  Country: None (occurrence: None)
  Receive Date: 20120608
  Receipt Date: 20120605
  Transmission Date: 20120825
  Serious: Yes (Other)
  Sender: FDA-Public Use
  Company Number: US-BAYER-2012-035473

PATIENT
  Age: 56 Year
  Sex: Male
  Weight: 79 kg

DRUGS (18)
  1. ANCEF [Concomitant]
  2. PLASMALYTE [GLUCOSE,POTASSIUM CHLORIDE] [Concomitant]
     Dosage: 1700 CC
  3. ETOMIDATE [Concomitant]
  4. SODIUM BICARBONATE [Concomitant]
  5. LASIX [Concomitant]
     Dosage: 20 MG, UNK
  6. HEPARIN [Concomitant]
  7. PROPOFOL [Concomitant]
  8. TRASYLOL [Suspect]
     Indication: CORONARY ARTERY BYPASS
     Dosage: 1 ML TEST DOSE, 100CC PUMP PRIME, 200 ML LOADING DOSE FOLLOWED BY 50 CC/HR CONTINUOUS
     Route: 042
     Dates: start: 20031027, end: 20031027
  9. NITROGLYCERIN [Concomitant]
     Dosage: UNK
     Dates: start: 20031027, end: 20031027
  10. CISTATRACURIUM [Concomitant]
     Dosage: UNK
     Dates: start: 20031027, end: 20031027
  11. MIDAZOLAM [Concomitant]
  12. PROTAMINE SULFATE [Concomitant]
  13. FENOLDOPAM [Concomitant]
     Dosage: UNK
     Dates: start: 20031027, end: 20031027
  14. RED BLOOD CELLS [Concomitant]
     Dosage: 2 U, UNK
     Route: 042
     Dates: start: 20031027
  15. DILAUDID [Concomitant]
  16. PHENYLEPHRINE HYDROCHLORIDE [Concomitant]
     Dosage: UNK
     Dates: start: 20031027, end: 20031027
  17. FENTANYL [Concomitant]
  18. MANNITOL [Concomitant]
     Dosage: 25 G, UNK

REACTIONS (2)
  - RENAL FAILURE ACUTE [None]
  - BLOOD CREATININE INCREASED [None]
